FAERS Safety Report 5616259-9 (Version None)
Quarter: 2008Q1

REPORT INFORMATION
  Report Type: 
  Country: None (occurrence: None)
  Receive Date: 20080204
  Receipt Date: 20080124
  Transmission Date: 20080703
  Serious: Yes (Hospitalization)
  Sender: FDA-Public Use
  Company Number: 20084491

PATIENT
  Sex: Male

DRUGS (1)
  1. LIORESAL [Suspect]
     Indication: MUSCLE SPASTICITY
     Dosage: MCG, DAILY, INTRATHECAL
     Route: 037

REACTIONS (6)
  - CATHETER RELATED COMPLICATION [None]
  - DRUG INEFFECTIVE [None]
  - HYPERTONIA [None]
  - PAIN [None]
  - URINARY RETENTION [None]
  - URINARY TRACT INFECTION [None]
